FAERS Safety Report 9867620 (Version 1)
Quarter: 2014Q1

REPORT INFORMATION
  Report Type: Report from Study
  Country: AU (occurrence: AU)
  Receive Date: 20140204
  Receipt Date: 20140204
  Transmission Date: 20141002
  Serious: Yes (Other)
  Sender: FDA-Public Use
  Company Number: AU-SANOFI-AVENTIS-200911501EU

PATIENT
  Age: 39 Year
  Sex: Female
  Weight: 58 kg

DRUGS (4)
  1. TERIFLUNOMIDE [Suspect]
     Indication: MULTIPLE SCLEROSIS RELAPSE
     Route: 048
     Dates: start: 20080804
  2. LEVLEN ED [Concomitant]
     Indication: CONTRACEPTION
     Dosage: DOSE AS USED: 150/3 MG
     Route: 048
     Dates: start: 20080722
  3. ERYTHROMYCIN [Concomitant]
     Indication: SINUSITIS
     Dates: start: 20090328, end: 20090404
  4. NUROFEN PLUS [Concomitant]
     Indication: SINUSITIS
     Dosage: DOSE:2 UNIT(S)
     Route: 048
     Dates: start: 20090326, end: 20090327

REACTIONS (1)
  - Lipase increased [Recovered/Resolved]
